FAERS Safety Report 6656335-5 (Version None)
Quarter: 2010Q1

REPORT INFORMATION
  Report Type: 
  Country: None (occurrence: None)
  Receive Date: 20100317
  Receipt Date: 20091120
  Transmission Date: 20100710
  Serious: No
  Sender: FDA-Public Use
  Company Number: DSA_42061_2009

PATIENT
  Sex: Female

DRUGS (18)
  1. XENAZINE [Suspect]
     Indication: DYSTONIA
     Dosage: (62.5 MG ORAL), (25 MG QID ORAL)
     Route: 048
     Dates: start: 20090923, end: 20090101
  2. XENAZINE [Suspect]
     Indication: DYSTONIA
     Dosage: (62.5 MG ORAL), (25 MG QID ORAL)
     Route: 048
     Dates: start: 20090101
  3. ARICEPT [Concomitant]
  4. BACLOFEN [Concomitant]
  5. METOPROLOL TARTRATE [Concomitant]
  6. GEODON [Concomitant]
  7. REVIA [Concomitant]
  8. COUMADIN [Concomitant]
  9. SYNTHROID [Concomitant]
  10. DDAVP [Concomitant]
  11. CLOZARIL [Concomitant]
  12. WELLBUTRIN XL [Concomitant]
  13. SEROQUEL [Concomitant]
  14. LEXAPRO [Concomitant]
  15. PROVIGIL [Concomitant]
  16. COLACE [Concomitant]
  17. PREVACID [Concomitant]
  18. MIRALAX [Concomitant]

REACTIONS (4)
  - ANXIETY [None]
  - DEPRESSION [None]
  - FLATULENCE [None]
  - PARANOIA [None]
